FAERS Safety Report 14333421 (Version 3)
Quarter: 2018Q1

REPORT INFORMATION
  Report Type: Spontaneous
  Country: CN (occurrence: CN)
  Receive Date: 20171228
  Receipt Date: 20180123
  Transmission Date: 20180509
  Serious: Yes (Death, Life-Threatening, Other)
  Sender: FDA-Public Use
  Company Number: CN-PFIZER INC-2017547569

PATIENT
  Age: 53 Year
  Sex: Female

DRUGS (5)
  1. CYCLOPHOSPHAMIDE. [Suspect]
     Active Substance: CYCLOPHOSPHAMIDE
     Indication: PLASMABLASTIC LYMPHOMA
     Dosage: 0.4 MG, CYCLIC (DAY 1)
  2. METHOTREXATE SODIUM. [Suspect]
     Active Substance: METHOTREXATE SODIUM
     Indication: PLASMABLASTIC LYMPHOMA
     Dosage: 25 MG, CYCLIC (DAY 2, 5)
  3. PIRARUBICIN [Suspect]
     Active Substance: PIRARUBICIN
     Indication: PLASMABLASTIC LYMPHOMA
     Dosage: 40 MG, CYCLIC (DAY 1)
  4. VINDESINE SULFATE [Suspect]
     Active Substance: VINDESINE SULFATE
     Indication: PLASMABLASTIC LYMPHOMA
     Dosage: 4 MG, CYCLIC (DAY 1)
  5. DEXAMETHASONE. [Suspect]
     Active Substance: DEXAMETHASONE
     Indication: PLASMABLASTIC LYMPHOMA
     Dosage: 10 MG, CYCLIC (DAY 1-8)

REACTIONS (2)
  - Bone marrow failure [Unknown]
  - Infection [Unknown]
